FAERS Safety Report 9142596 (Version 1)
Quarter: 2013Q1

REPORT INFORMATION
  Report Type: Spontaneous
  Country: GB (occurrence: GB)
  Receive Date: 20130306
  Receipt Date: 20130306
  Transmission Date: 20140127
  Serious: Yes (Other)
  Sender: FDA-Public Use
  Company Number: GB-BANPHARM-20130877

PATIENT
  Age: 46 Year
  Sex: Female

DRUGS (3)
  1. IBUPROFEN UNKNOWN PRODUCT [Suspect]
     Indication: PERIARTHRITIS
     Dosage: 400 MG, TID
     Route: 048
     Dates: start: 201211, end: 20130130
  2. NAPROXEN [Suspect]
     Indication: PERIARTHRITIS
     Dosage: 500 MG, BID,
     Route: 048
     Dates: start: 20130201, end: 20130202
  3. PARACETAMOL [Concomitant]
     Indication: PERIARTHRITIS
     Dosage: 1 G, QID,
     Route: 048
     Dates: start: 201211

REACTIONS (2)
  - Discomfort [Not Recovered/Not Resolved]
  - Tremor [Not Recovered/Not Resolved]
